FAERS Safety Report 5849552-5 (Version None)
Quarter: 2008Q3

REPORT INFORMATION
  Report Type: 
  Country: None (occurrence: None)
  Receive Date: 20080731
  Receipt Date: 20080404
  Transmission Date: 20090109
  Serious: No
  Sender: FDA-Public Use
  Company Number: US200804001505

PATIENT
  Sex: Male
  Weight: 113.4 kg

DRUGS (4)
  1. BYETTA [Suspect]
     Indication: TYPE 2 DIABETES MELLITUS
     Dosage: 5 UG, 2/D, SUBCUTANEOUS; 10 UG, 2/D, SUBCUTANEOUS
     Route: 058
     Dates: start: 20080301, end: 20080301
  2. BYETTA [Suspect]
     Indication: TYPE 2 DIABETES MELLITUS
     Dosage: 5 UG, 2/D, SUBCUTANEOUS; 10 UG, 2/D, SUBCUTANEOUS
     Route: 058
     Dates: start: 20080331
  3. METFORMIN HCL [Concomitant]
  4. GLYBURIDE [Concomitant]

REACTIONS (3)
  - BLOOD GLUCOSE INCREASED [None]
  - DIPLOPIA [None]
  - DRUG EFFECT DECREASED [None]
